FAERS Safety Report 9100598 (Version 7)
Quarter: 2014Q1

REPORT INFORMATION
  Report Type: Spontaneous
  Country: GB (occurrence: GB)
  Receive Date: 20130215
  Receipt Date: 20140121
  Transmission Date: 20141002
  Serious: Yes (Hospitalization, Other)
  Sender: FDA-Public Use
  Company Number: GB-JNJFOC-20130200408

PATIENT
  Age: 45 Year
  Sex: Female

DRUGS (16)
  1. HALOPERIDOL [Suspect]
     Indication: PRODUCT USED FOR UNKNOWN INDICATION
     Route: 065
     Dates: start: 19811018
  2. DEPIXOL [Suspect]
     Indication: PRODUCT USED FOR UNKNOWN INDICATION
     Route: 065
     Dates: start: 19811018
  3. VALIUM [Suspect]
     Indication: PRODUCT USED FOR UNKNOWN INDICATION
     Route: 065
     Dates: start: 19811018
  4. UNKNOWN MEDICATION [Suspect]
     Indication: PRODUCT USED FOR UNKNOWN INDICATION
     Route: 065
  5. SPARINE [Suspect]
     Indication: PRODUCT USED FOR UNKNOWN INDICATION
     Route: 065
     Dates: start: 19811018
  6. DISIPAL [Suspect]
     Indication: PRODUCT USED FOR UNKNOWN INDICATION
     Route: 065
     Dates: start: 19811018
  7. ISTIN [Suspect]
     Indication: PRODUCT USED FOR UNKNOWN INDICATION
     Route: 065
  8. KEMADRIN [Suspect]
     Indication: PRODUCT USED FOR UNKNOWN INDICATION
     Route: 065
     Dates: start: 19811018
  9. NORMAXIN [Suspect]
     Indication: PRODUCT USED FOR UNKNOWN INDICATION
     Route: 065
  10. RELACTON-C [Suspect]
     Indication: PRODUCT USED FOR UNKNOWN INDICATION
     Route: 065
  11. SURMONTIL [Suspect]
     Indication: PRODUCT USED FOR UNKNOWN INDICATION
     Route: 065
  12. DIAZEPAM [Suspect]
     Indication: PRODUCT USED FOR UNKNOWN INDICATION
     Route: 065
  13. DROLEPTAN [Suspect]
     Indication: PRODUCT USED FOR UNKNOWN INDICATION
     Route: 065
  14. NORMISON [Suspect]
     Indication: PRODUCT USED FOR UNKNOWN INDICATION
     Route: 065
  15. XOMOLIX [Suspect]
     Indication: PRODUCT USED FOR UNKNOWN INDICATION
     Route: 065
  16. PROCYCLIDINE [Suspect]
     Indication: PRODUCT USED FOR UNKNOWN INDICATION
     Route: 065

REACTIONS (44)
  - Intentional drug misuse [Unknown]
  - Autoimmune disorder [Unknown]
  - Sensory disturbance [Unknown]
  - Blindness [Unknown]
  - Exposure during pregnancy [Unknown]
  - Musculoskeletal disorder [Not Recovered/Not Resolved]
  - Intraocular pressure increased [Unknown]
  - Hallucination, visual [Unknown]
  - Myelopathy [Unknown]
  - Palpitations [Unknown]
  - Neck pain [Unknown]
  - Muscle atrophy [Unknown]
  - Movement disorder [Unknown]
  - Abortion spontaneous [Unknown]
  - Mental disorder [Unknown]
  - Disturbance in attention [Unknown]
  - Amnesia [Unknown]
  - Arthralgia [Unknown]
  - Jaw disorder [Unknown]
  - Benign hydatidiform mole [Unknown]
  - Heart rate irregular [Unknown]
  - Dyskinesia [Unknown]
  - Depression [Unknown]
  - Cytogenetic abnormality [Unknown]
  - Chemical poisoning [Unknown]
  - Self injurious behaviour [Unknown]
  - Bone erosion [Not Recovered/Not Resolved]
  - Osteochondritis [Unknown]
  - Reproductive tract disorder [Unknown]
  - Immune system disorder [Unknown]
  - Suicide attempt [Unknown]
  - Overdose [Unknown]
  - Suicidal ideation [Unknown]
  - Pain [Unknown]
  - Joint destruction [Unknown]
  - Myalgia [Unknown]
  - Osteoarthritis [Unknown]
  - Rheumatoid arthritis [Unknown]
  - Victim of child abuse [Unknown]
  - Sensory disturbance [Unknown]
  - Feeling abnormal [Unknown]
  - Osteoarthritis [Unknown]
  - Heart rate irregular [Unknown]
  - Intentional self-injury [Unknown]
